FAERS Safety Report 20845941 (Version 1)
Quarter: 2022Q2

REPORT INFORMATION
  Report Type: Spontaneous
  Country: US (occurrence: US)
  Receive Date: 20220518
  Receipt Date: 20220518
  Transmission Date: 20220721
  Serious: No
  Sender: FDA-Public Use
  Company Number: USA--2022-US-000199

PATIENT
  Age: 66 Year
  Sex: Female

DRUGS (2)
  1. LATANOPROST [Suspect]
     Active Substance: LATANOPROST
     Dates: start: 20220301, end: 20220306
  2. Theraflu multi-symptom severe cold hot liquid powder [Concomitant]
     Route: 048
     Dates: start: 20220215, end: 20220301

REACTIONS (2)
  - Eyelid rash [Recovered/Resolved]
  - Ocular hyperaemia [Recovered/Resolved]

NARRATIVE: CASE EVENT DATE: 20220302
